FAERS Safety Report 8814726 (Version 2)
Quarter: 2012Q4

REPORT INFORMATION
  Report Type: 
  Country: US (occurrence: US)
  Receive Date: 20120928
  Receipt Date: 20121003
  Transmission Date: 20130627
  Serious: Yes (Hospitalization)
  Sender: FDA-Public Use
  Company Number: US-PFIZER INC-2012239714

PATIENT
  Age: 65 Year
  Sex: Male
  Weight: 97.5 kg

DRUGS (5)
  1. NEURONTIN [Suspect]
     Indication: NEURALGIA
     Dosage: 600 mg, 2x/day
  2. NEURONTIN [Suspect]
     Dosage: 600 mg, 3x/day
  3. PROTONIX [Suspect]
     Indication: GASTRIC DISORDER
     Dosage: 40 mg, daily
  4. GLUCOPHAGE [Suspect]
     Indication: BLOOD GLUCOSE ABNORMAL
     Dosage: 600 mg, 2x/day
  5. GLUCOPHAGE [Suspect]
     Dosage: 600 mg, 3x/day
     Dates: start: 201209, end: 201209

REACTIONS (3)
  - Hyperhidrosis [Unknown]
  - Cardiac disorder [Unknown]
  - Weight increased [Unknown]
